FAERS Safety Report 6074518-2 (Version None)
Quarter: 2009Q1

REPORT INFORMATION
  Report Type: 
  Country: None (occurrence: None)
  Receive Date: 20090206
  Receipt Date: 20090126
  Transmission Date: 20090719
  Serious: Yes (Hospitalization)
  Sender: FDA-Public Use
  Company Number: 2009S1001399

PATIENT
  Age: 58 Year
  Sex: Female

DRUGS (17)
  1. CLOMIPRAMINE HCL [Suspect]
     Indication: DRUG USE FOR UNKNOWN INDICATION
     Dosage: 120 MG ; 200 MG;DAILY ; 25 MG;DAILY;ORAL
     Route: 048
     Dates: start: 19830101, end: 20071210
  2. CLOMIPRAMINE HCL [Suspect]
     Indication: DRUG USE FOR UNKNOWN INDICATION
     Dosage: 120 MG ; 200 MG;DAILY ; 25 MG;DAILY;ORAL
     Route: 048
     Dates: start: 20080101
  3. FLUOXETINE [Suspect]
     Indication: DRUG USE FOR UNKNOWN INDICATION
     Dosage: 60 MG ; 40 MG ; 20 MG
     Dates: start: 20071231, end: 20080119
  4. FLUOXETINE [Suspect]
     Indication: DRUG USE FOR UNKNOWN INDICATION
     Dosage: 60 MG ; 40 MG ; 20 MG
     Dates: start: 20080120, end: 20080224
  5. FLUOXETINE [Suspect]
     Indication: DRUG USE FOR UNKNOWN INDICATION
     Dosage: 60 MG ; 40 MG ; 20 MG
     Dates: start: 20080225
  6. SIMVASTATIN [Suspect]
     Indication: DRUG USE FOR UNKNOWN INDICATION
     Dosage: 40 MG
  7. DEPAKOTE [Suspect]
     Indication: DRUG USE FOR UNKNOWN INDICATION
     Dosage: 500 MG;TWICE A DAY;ORAL
     Route: 048
  8. SEROQUEL [Suspect]
     Indication: ANXIETY
     Dosage: 350 MG;DAILY;ORAL ; 300 MG;DAILY;ORAL ; 250 BID
     Route: 048
     Dates: start: 20080401
  9. SEROQUEL [Suspect]
     Indication: DEPRESSION
     Dosage: 350 MG;DAILY;ORAL ; 300 MG;DAILY;ORAL ; 250 BID
     Route: 048
     Dates: start: 20080401
  10. SEROQUEL [Suspect]
     Indication: ANXIETY
     Dosage: 350 MG;DAILY;ORAL ; 300 MG;DAILY;ORAL ; 250 BID
     Route: 048
     Dates: start: 20080901
  11. SEROQUEL [Suspect]
     Indication: DEPRESSION
     Dosage: 350 MG;DAILY;ORAL ; 300 MG;DAILY;ORAL ; 250 BID
     Route: 048
     Dates: start: 20080901
  12. SEROQUEL [Suspect]
     Indication: ANXIETY
     Dosage: 350 MG;DAILY;ORAL ; 300 MG;DAILY;ORAL ; 250 BID
     Route: 048
     Dates: start: 20081031
  13. SEROQUEL [Suspect]
     Indication: DEPRESSION
     Dosage: 350 MG;DAILY;ORAL ; 300 MG;DAILY;ORAL ; 250 BID
     Route: 048
     Dates: start: 20081031
  14. ZOPICLONE (ZOPICLONE) [Suspect]
     Indication: DRUG USE FOR UNKNOWN INDICATION
     Dosage: 10 MG;DAILY
  15. DIAZEPAM [Concomitant]
  16. HALOPERIDOL [Concomitant]
  17. RISPERIDONE [Concomitant]

REACTIONS (13)
  - ANXIETY [None]
  - DEPRESSED MOOD [None]
  - DISTURBANCE IN SEXUAL AROUSAL [None]
  - DRUG WITHDRAWAL SYNDROME [None]
  - EMOTIONAL DISTRESS [None]
  - EXTRASYSTOLES [None]
  - HEART RATE IRREGULAR [None]
  - NERVOUS SYSTEM DISORDER [None]
  - NIGHTMARE [None]
  - ORTHOSTATIC HYPOTENSION [None]
  - PALPITATIONS [None]
  - SOMNOLENCE [None]
  - SUICIDAL IDEATION [None]
